FAERS Safety Report 9245497 (Version 2)
Quarter: 2013Q2

REPORT INFORMATION
  Report Type: Spontaneous
  Country: CN (occurrence: CN)
  Receive Date: 20130422
  Receipt Date: 20130501
  Transmission Date: 20140414
  Serious: Yes (Death)
  Sender: FDA-Public Use
  Company Number: CN-ASTRAZENECA-2013SE25432

PATIENT
  Sex: Female

DRUGS (5)
  1. SEROQUEL [Suspect]
     Indication: DEPRESSION
     Route: 048
     Dates: start: 20130409, end: 20130412
  2. SEROQUEL [Suspect]
     Indication: ABNORMAL BEHAVIOUR
     Route: 048
     Dates: start: 20130409, end: 20130412
  3. ZOLOFT [Concomitant]
     Indication: DEPRESSION
     Route: 048
     Dates: end: 20130412
  4. LORAZEPAM [Concomitant]
     Indication: DEPRESSION
     Route: 048
     Dates: end: 20130412
  5. ANSHENWAN [Concomitant]
     Indication: DEPRESSION
     Route: 048
     Dates: end: 20130412

REACTIONS (1)
  - Death [Fatal]
